FAERS Safety Report 10530585 (Version 1)
Quarter: 2014Q4

REPORT INFORMATION
  Report Type: Spontaneous
  Country: None (occurrence: None)
  Receive Date: 20141020
  Receipt Date: 20141020
  Transmission Date: 20150528
  Serious: No
  Sender: FDA-Public Use
  Company Number: None

PATIENT
  Age: 22 Year
  Sex: Female

DRUGS (1)
  1. HUMIRA [Suspect]
     Active Substance: ADALIMUMAB
     Dosage: 40MG  EVERY OTHER WEEK  SQ
     Route: 058
     Dates: start: 20121119, end: 20140921

REACTIONS (4)
  - Pyrexia [None]
  - Contusion [None]
  - Systemic lupus erythematosus [None]
  - Nasopharyngitis [None]

NARRATIVE: CASE EVENT DATE: 20141003
